FAERS Safety Report 22328308 (Version 1)
Quarter: 2023Q2

REPORT INFORMATION
  Report Type: Spontaneous
  Country: US (occurrence: US)
  Receive Date: 20230517
  Receipt Date: 20230517
  Transmission Date: 20230722
  Serious: No
  Sender: FDA-Public Use
  Company Number: US-RADIUS HEALTH INC.-2023US001504

PATIENT
  Sex: Female

DRUGS (1)
  1. TYMLOS [Suspect]
     Active Substance: ABALOPARATIDE
     Indication: Vitamin D deficiency
     Dosage: 80 MCG, DAILY
     Route: 058
     Dates: start: 202301

REACTIONS (5)
  - Abdominal rigidity [Unknown]
  - Pain [Recovered/Resolved]
  - Muscle spasms [Unknown]
  - Arthralgia [Unknown]
  - Product use in unapproved indication [Unknown]
